FAERS Safety Report 8458275-8 (Version None)
Quarter: 2012Q2

REPORT INFORMATION
  Report Type: 
  Country: None (occurrence: None)
  Receive Date: 20120323
  Receipt Date: 20111024
  Transmission Date: 20120825
  Serious: Yes (Hospitalization)
  Sender: FDA-Public Use
  Company Number: 163-21880-11102755

PATIENT
  Age: 68 Year
  Sex: Male

DRUGS (10)
  1. VELCADE [Concomitant]
  2. FOLIC ACID [Concomitant]
  3. MAG-OXIDE (MAGNESIUM OXIDE) [Concomitant]
  4. AMLODIPINE [Concomitant]
  5. BACTRIM [Concomitant]
  6. REVLIMID [Suspect]
     Indication: MULTIPLE MYELOMA
     Dosage: 25;10 MG, 1 IN 1 D, PO
     Route: 048
     Dates: start: 20100401
  7. REVLIMID [Suspect]
     Indication: MULTIPLE MYELOMA
     Dosage: 25;10 MG, 1 IN 1 D, PO
     Route: 048
     Dates: start: 20110901
  8. AMICAR [Concomitant]
  9. ACYCLOVIR [Concomitant]
  10. DOXIL [Concomitant]

REACTIONS (1)
  - RECTAL HAEMORRHAGE [None]
